FAERS Safety Report 6404978-6 (Version None)
Quarter: 2009Q4

REPORT INFORMATION
  Report Type: 
  Country: None (occurrence: None)
  Receive Date: 20091019
  Receipt Date: 20091006
  Transmission Date: 20100525
  Serious: Yes (Hospitalization, Other)
  Sender: FDA-Public Use
  Company Number: US-PFIZER INC-2009269726

PATIENT
  Age: 19 Year
  Sex: Male

DRUGS (1)
  1. GEODON [Suspect]
     Dosage: 60 MG, UNK

REACTIONS (3)
  - PNEUMOTHORAX [None]
  - SELF INJURIOUS BEHAVIOUR [None]
  - SUICIDAL IDEATION [None]
